FAERS Safety Report 15287322 (Version 2)
Quarter: 2018Q3

REPORT INFORMATION
  Report Type: Spontaneous
  Country: FR (occurrence: FR)
  Receive Date: 20180817
  Receipt Date: 20180912
  Transmission Date: 20181010
  Serious: Yes (Congenital Anomaly, Other)
  Sender: FDA-Public Use
  Company Number: FR-AUROBINDO-AUR-APL-2018-041700

PATIENT
  Age: 2 Month
  Sex: Male
  Weight: 6.9 kg

DRUGS (4)
  1. NEVIRAPINE. [Suspect]
     Active Substance: NEVIRAPINE
     Indication: HIV INFECTION
     Dosage: 1.5 MILLILITER, ONCE A DAY
     Route: 064
     Dates: start: 20151110
  2. RALTEGRAVIR POTASSIUM [Suspect]
     Active Substance: RALTEGRAVIR POTASSIUM
     Indication: HIV INFECTION
     Dosage: 400 MG, QD
     Route: 064
     Dates: start: 20151110, end: 20161208
  3. RALTEGRAVIR POTASSIUM [Suspect]
     Active Substance: RALTEGRAVIR POTASSIUM
     Dosage: UNK
     Route: 064
  4. TENOFOVIR DISOPROXIL FILM COATED TABLETS [Suspect]
     Active Substance: TENOFOVIR DISOPROXIL
     Indication: HIV INFECTION
     Dosage: UNK
     Route: 064
     Dates: start: 20151110

REACTIONS (4)
  - Brachydactyly [Unknown]
  - Foetal exposure during pregnancy [Recovered/Resolved]
  - Laryngomalacia [Unknown]
  - Congenital umbilical hernia [Unknown]

NARRATIVE: CASE EVENT DATE: 20161019
